FAERS Safety Report 4356723-6 (Version None)
Quarter: 2004Q2

REPORT INFORMATION
  Report Type: 
  Country: None (occurrence: None)
  Receive Date: 20040507
  Receipt Date: 20040428
  Transmission Date: 20050107
  Serious: Yes (Other)
  Sender: FDA-Public Use
  Company Number: HQWYE688904MAY04

PATIENT
  Sex: Female

DRUGS (1)
  1. EFFEXOR XR [Suspect]
     Dosage: UNKNOWN, ORAL
     Route: 048

REACTIONS (2)
  - ANGIONEUROTIC OEDEMA [None]
  - INAPPROPRIATE ANTIDIURETIC HORMONE SECRETION [None]
